FAERS Safety Report 4736552-1 (Version None)
Quarter: 2005Q3

REPORT INFORMATION
  Report Type: 
  Country: None (occurrence: None)
  Receive Date: 20050804
  Receipt Date: 20050722
  Transmission Date: 20060218
  Serious: Yes (Hospitalization)
  Sender: FDA-Public Use
  Company Number: 2005BI013998

PATIENT
  Age: 53 Year
  Sex: Female
  Weight: 64.4108 kg

DRUGS (3)
  1. AVONEX [Suspect]
     Indication: MULTIPLE SCLEROSIS
     Dosage: 30 UG;QW;IM
     Route: 030
     Dates: start: 20020101, end: 20030801
  2. AVONEX [Suspect]
     Indication: MULTIPLE SCLEROSIS
     Dosage: 30 UG; QW; IM
     Route: 030
     Dates: start: 20030801, end: 20050623
  3. ADVAIR DISKUS 100/50 [Concomitant]

REACTIONS (4)
  - HAEMOGLOBIN DECREASED [None]
  - PROCEDURAL PAIN [None]
  - PRURITUS [None]
  - SCOLIOSIS [None]
